FAERS Safety Report 4281694-0 (Version None)
Quarter: 2004Q1

REPORT INFORMATION
  Report Type: 
  Country: None (occurrence: None)
  Receive Date: 20040120
  Receipt Date: 20030509
  Transmission Date: 20041129
  Serious: Yes (Life-Threatening)
  Sender: FDA-Public Use
  Company Number: BDI-005091

PATIENT
  Age: 29 Year
  Sex: Female
  Weight: 68 kg

DRUGS (2)
  1. PROHANCE [Suspect]
     Indication: DEAFNESS
     Dosage: 17 ML ONCE IV
     Route: 042
     Dates: start: 20030518, end: 20030518
  2. PROHANCE [Suspect]
     Indication: NUCLEAR MAGNETIC RESONANCE IMAGING BRAIN
     Dosage: 17 ML ONCE IV
     Route: 042
     Dates: start: 20030518, end: 20030518

REACTIONS (1)
  - HYPERSENSITIVITY [None]
